FAERS Safety Report 13704639 (Version 1)
Quarter: 2017Q2

REPORT INFORMATION
  Report Type: Spontaneous
  Country: US (occurrence: US)
  Receive Date: 20170629
  Receipt Date: 20170629
  Transmission Date: 20170830
  Serious: Yes (Disabling)
  Sender: FDA-Public Use
  Company Number: None

PATIENT
  Age: 65 Year
  Sex: Female
  Weight: 73.35 kg

DRUGS (10)
  1. VITAMIN D [Concomitant]
     Active Substance: CHOLECALCIFEROL
  2. CLONAZEPAM 0.5 MG [Suspect]
     Active Substance: CLONAZEPAM
     Indication: ANXIETY DISORDER
     Dosage: VARIOUS
  3. LISINOPRIL. [Concomitant]
     Active Substance: LISINOPRIL
  4. TURMERIC [Concomitant]
     Active Substance: HERBALS\TURMERIC
  5. FISH OIL [Concomitant]
     Active Substance: FISH OIL
  6. PRAVASTATIN. [Concomitant]
     Active Substance: PRAVASTATIN
  7. CLONAZEPAM 0.5 MG [Suspect]
     Active Substance: CLONAZEPAM
     Indication: INSOMNIA
     Dosage: VARIOUS
  8. CLONAZEPAM 0.5 MG [Suspect]
     Active Substance: CLONAZEPAM
     Indication: POST-TRAUMATIC STRESS DISORDER
     Dosage: VARIOUS
  9. REPATHA [Concomitant]
     Active Substance: EVOLOCUMAB
  10. COENZYME Q10 [Concomitant]
     Active Substance: UBIDECARENONE

REACTIONS (5)
  - Fatigue [None]
  - Head discomfort [None]
  - Anxiety [None]
  - Eye disorder [None]
  - Insomnia [None]

NARRATIVE: CASE EVENT DATE: 20160626
